FAERS Safety Report 23113559 (Version 1)
Quarter: 2023Q4

REPORT INFORMATION
  Report Type: Report from Study
  Country: US (occurrence: US)
  Receive Date: 20231027
  Receipt Date: 20231027
  Transmission Date: 20240110
  Serious: Yes (Hospitalization, Other)
  Sender: FDA-Public Use
  Company Number: US-GILEAD-2023-0648696

PATIENT
  Age: 59 Year
  Sex: Female

DRUGS (39)
  1. AZTREONAM LYSINE [Suspect]
     Active Substance: AZTREONAM LYSINE
     Indication: Cystic fibrosis
     Dosage: 75,INHALE 1 VIAL VIA NEBULIZER THREE TIMES DAILY FOR 28 DAYS ON THEN 28 DAYS OFF
     Route: 055
     Dates: start: 20230421
  2. URSODIOL [Concomitant]
     Active Substance: URSODIOL
  3. TRAMADOL [Concomitant]
     Active Substance: TRAMADOL\TRAMADOL HYDROCHLORIDE
  4. MUCINEX [Concomitant]
     Active Substance: GUAIFENESIN
  5. LORATADINE [Concomitant]
     Active Substance: LORATADINE
  6. ZOLOFT [Concomitant]
     Active Substance: SERTRALINE HYDROCHLORIDE
  7. LEVALBUTEROL [Concomitant]
     Active Substance: LEVALBUTEROL
  8. PANTOPRAZOLE [Concomitant]
     Active Substance: PANTOPRAZOLE
  9. BENTYL [Concomitant]
     Active Substance: DICYCLOMINE HYDROCHLORIDE
  10. ACID REDUCER [CIMETIDINE] [Concomitant]
  11. TRIKAFTA [Concomitant]
     Active Substance: ELEXACAFTOR\IVACAFTOR\TEZACAFTOR
  12. CALCIUM [Concomitant]
     Active Substance: CALCIUM
  13. LORATADINE [Concomitant]
     Active Substance: LORATADINE
  14. SODIUM CHLORIDE [Concomitant]
     Active Substance: SODIUM CHLORIDE
  15. OXYCODONE/APAP [Concomitant]
     Active Substance: ACETAMINOPHEN\OXYCODONE HYDROCHLORIDE
  16. SEROQUEL [Concomitant]
     Active Substance: QUETIAPINE FUMARATE
  17. METAXALONE [Concomitant]
     Active Substance: METAXALONE
  18. SERTRALINE [Concomitant]
     Active Substance: SERTRALINE HYDROCHLORIDE
  19. TRAZODONE [Concomitant]
     Active Substance: TRAZODONE HYDROCHLORIDE
  20. PROCHLORPERAZINE [Concomitant]
     Active Substance: PROCHLORPERAZINE
  21. TOPAMAX [Concomitant]
     Active Substance: TOPIRAMATE
  22. LEVAQUIN [Concomitant]
     Active Substance: LEVOFLOXACIN
  23. ACETAMINOPHEN\CODEINE PHOSPHATE [Concomitant]
     Active Substance: ACETAMINOPHEN\CODEINE PHOSPHATE
  24. XIFAXAN [Concomitant]
     Active Substance: RIFAXIMIN
  25. MELATONIN [Concomitant]
     Active Substance: MELATONIN
  26. CARAFATE [Concomitant]
     Active Substance: SUCRALFATE
  27. PANCREAZE [Concomitant]
     Active Substance: PANCRELIPASE AMYLASE\PANCRELIPASE LIPASE\PANCRELIPASE PROTEASE
  28. CYCLOBENZAPRINUM [Concomitant]
  29. ELIQUIS [Concomitant]
     Active Substance: APIXABAN
  30. BENZONATATE [Concomitant]
     Active Substance: BENZONATATE
  31. FAMOTIDINE [Concomitant]
     Active Substance: FAMOTIDINE
  32. ADVAIR HFA [Concomitant]
     Active Substance: FLUTICASONE PROPIONATE\SALMETEROL XINAFOATE
  33. GUAIFENESIN [Concomitant]
     Active Substance: GUAIFENESIN
  34. FLONASE [Concomitant]
     Active Substance: FLUTICASONE PROPIONATE
  35. PROMETHAZINE [Concomitant]
     Active Substance: PROMETHAZINE HYDROCHLORIDE
  36. CRESEMBA [Concomitant]
     Active Substance: ISAVUCONAZONIUM SULFATE
  37. PERCOCET [Concomitant]
     Active Substance: ACETAMINOPHEN\OXYCODONE HYDROCHLORIDE
  38. CREON [Concomitant]
     Active Substance: PANCRELIPASE AMYLASE\PANCRELIPASE LIPASE\PANCRELIPASE PROTEASE
  39. PULMOZYME [Concomitant]
     Active Substance: DORNASE ALFA

REACTIONS (1)
  - Pneumonia [Unknown]
